FAERS Safety Report 13083994 (Version 2)
Quarter: 2017Q1

REPORT INFORMATION
  Report Type: Spontaneous
  Country: FR (occurrence: FR)
  Receive Date: 20170104
  Receipt Date: 20170209
  Transmission Date: 20170428
  Serious: Yes (Hospitalization, Disabling, Other)
  Sender: FDA-Public Use
  Company Number: FR-AMGEN-FRASP2017000178

PATIENT
  Age: 74 Year
  Sex: Female
  Weight: 68 kg

DRUGS (2)
  1. PROLIA [Suspect]
     Active Substance: DENOSUMAB
     Indication: OSTEOPOROSIS
     Dosage: UNK UNK, Q6MO
     Route: 058
     Dates: start: 20130129
  2. PROLIA [Suspect]
     Active Substance: DENOSUMAB
     Dosage: UNK, Q9MO
     Route: 058

REACTIONS (3)
  - Bone infarction [Recovering/Resolving]
  - Retinal vein occlusion [Unknown]
  - Off label use [Unknown]

NARRATIVE: CASE EVENT DATE: 201610
